FAERS Safety Report 15987430 (Version 1)
Quarter: 2019Q1

REPORT INFORMATION
  Report Type: Spontaneous
  Country: US (occurrence: US)
  Receive Date: 20190220
  Receipt Date: 20190220
  Transmission Date: 20190418
  Serious: Yes (Hospitalization, Other)
  Sender: FDA-Public Use
  Company Number: US-JNJFOC-20190223827

PATIENT
  Age: 52 Year
  Sex: Male
  Weight: 96.16 kg

DRUGS (1)
  1. INVOKANA [Suspect]
     Active Substance: CANAGLIFLOZIN
     Indication: TYPE 2 DIABETES MELLITUS
     Route: 048
     Dates: start: 20150324

REACTIONS (6)
  - Abscess limb [Unknown]
  - Sepsis [Recovered/Resolved]
  - Toe amputation [Unknown]
  - Cellulitis [Unknown]
  - Foot deformity [Unknown]
  - Osteomyelitis [Unknown]

NARRATIVE: CASE EVENT DATE: 201706
